FAERS Safety Report 21097948 (Version 2)
Quarter: 2022Q3

REPORT INFORMATION
  Report Type: Spontaneous
  Country: CA (occurrence: CA)
  Receive Date: 20220719
  Receipt Date: 20220901
  Transmission Date: 20221027
  Serious: Yes (Other)
  Sender: FDA-Public Use
  Company Number: CA-SAMSUNG BIOEPIS-SB-2022-17086

PATIENT
  Age: 59 Year
  Sex: Female

DRUGS (1)
  1. INFLIXIMAB [Suspect]
     Active Substance: INFLIXIMAB
     Indication: Crohn^s disease
     Dosage: CYCLICAL
     Route: 042

REACTIONS (10)
  - Mouth ulceration [Unknown]
  - Back pain [Unknown]
  - Condition aggravated [Unknown]
  - Hypersensitivity [Unknown]
  - Hypertension [Unknown]
  - Infection [Unknown]
  - Malaise [Unknown]
  - Poor venous access [Unknown]
  - Therapeutic response shortened [Unknown]
  - Off label use [Unknown]
